FAERS Safety Report 17325387 (Version 1)
Quarter: 2020Q1

REPORT INFORMATION
  Report Type: Spontaneous
  Country: US (occurrence: US)
  Receive Date: 20200127
  Receipt Date: 20200127
  Transmission Date: 20200409
  Serious: No
  Sender: FDA-Public Use
  Company Number: US-ELI_LILLY_AND_COMPANY-US202001005655

PATIENT
  Age: 65 Year
  Sex: Female

DRUGS (3)
  1. TROKENDI XR [Concomitant]
     Active Substance: TOPIRAMATE
     Indication: MIGRAINE
     Dosage: 100 MG, DAILY
  2. BOTOX [Concomitant]
     Active Substance: ONABOTULINUMTOXINA
     Indication: TORTICOLLIS
  3. EMGALITY [Suspect]
     Active Substance: GALCANEZUMAB-GNLM
     Indication: HEADACHE
     Dosage: 240 MG, OTHER
     Route: 058
     Dates: start: 20200109

REACTIONS (4)
  - Headache [Unknown]
  - Sinusitis [Unknown]
  - Bronchitis [Unknown]
  - Injection site pain [Unknown]
